FAERS Safety Report 4852231-4 (Version None)
Quarter: 2005Q4

REPORT INFORMATION
  Report Type: 
  Country: None (occurrence: None)
  Receive Date: 20051213
  Receipt Date: 20051202
  Transmission Date: 20060501
  Serious: Yes (Other)
  Sender: FDA-Public Use
  Company Number: GB-JNJFOC-20051201020

PATIENT
  Sex: Male
  Weight: 89 kg

DRUGS (7)
  1. REMICADE [Suspect]
     Indication: RHEUMATOID ARTHRITIS
     Route: 042
  2. METHOTREXATE [Concomitant]
  3. PREDNISOLONE [Concomitant]
  4. CELEBREX [Concomitant]
  5. CO-DYDRAMOL [Concomitant]
  6. CO-DYDRAMOL [Concomitant]
  7. FOLIC ACID [Concomitant]

REACTIONS (1)
  - NEOPLASM MALIGNANT [None]
